FAERS Safety Report 6342195-9 (Version None)
Quarter: 2009Q3

REPORT INFORMATION
  Report Type: 
  Country: None (occurrence: None)
  Receive Date: 20090904
  Receipt Date: 20090904
  Transmission Date: 20100115
  Serious: Yes (Life-Threatening, Other)
  Sender: FDA-Public Use
  Company Number: None

PATIENT
  Sex: Male

DRUGS (5)
  1. VARENICLINE PFIZER [Suspect]
     Indication: SMOKING CESSATION THERAPY
  2. ATRIPLA [Concomitant]
  3. EFAVIRENZ [Concomitant]
  4. EMTRICITABINE [Concomitant]
  5. TENOFOVIR [Concomitant]

REACTIONS (3)
  - ABNORMAL DREAMS [None]
  - INSOMNIA [None]
  - MIDDLE INSOMNIA [None]
